FAERS Safety Report 6484215-7 (Version None)
Quarter: 2009Q4

REPORT INFORMATION
  Report Type: 
  Country: None (occurrence: None)
  Receive Date: 20091209
  Receipt Date: 20091201
  Transmission Date: 20100525
  Serious: Yes (Other)
  Sender: FDA-Public Use
  Company Number: A0834027A

PATIENT
  Age: 27 Year
  Sex: Female

DRUGS (6)
  1. LAMOTRIGINE [Suspect]
     Dosage: 50MG TWICE PER DAY
     Dates: start: 20090101
  2. CELEXA [Concomitant]
     Indication: DRUG USE FOR UNKNOWN INDICATION
     Dosage: 20MG PER DAY
  3. SEROQUEL [Concomitant]
     Indication: DRUG USE FOR UNKNOWN INDICATION
     Dosage: 50MG PER DAY
  4. PERCOCET [Concomitant]
     Indication: MIGRAINE
     Dates: start: 20090501
  5. HYDROCODONE [Concomitant]
     Indication: MIGRAINE
     Dates: start: 20090901
  6. VICODIN [Concomitant]
     Indication: MIGRAINE
     Dates: start: 20090601

REACTIONS (5)
  - CONVERSION DISORDER [None]
  - DRUG EXPOSURE DURING PREGNANCY [None]
  - LIVE BIRTH [None]
  - LOSS OF CONSCIOUSNESS [None]
  - MIGRAINE [None]
